FAERS Safety Report 19654469 (Version 3)
Quarter: 2021Q3

REPORT INFORMATION
  Report Type: Report from Study
  Country: US (occurrence: US)
  Receive Date: 20210803
  Receipt Date: 20210818
  Transmission Date: 20211014
  Serious: No
  Sender: FDA-Public Use
  Company Number: NVSC2021US173985

PATIENT
  Sex: Male

DRUGS (3)
  1. ENTRESTO [Suspect]
     Active Substance: SACUBITRIL\VALSARTAN
     Route: 048
  2. ELIQUIS [Suspect]
     Active Substance: APIXABAN
     Indication: PRODUCT USED FOR UNKNOWN INDICATION
     Route: 065
  3. ENTRESTO [Suspect]
     Active Substance: SACUBITRIL\VALSARTAN
     Indication: PRODUCT USED FOR UNKNOWN INDICATION
     Dosage: 0.5 DF, BID (24/26 MG TWICE A DAY)
     Route: 048

REACTIONS (6)
  - Hypotension [Not Recovered/Not Resolved]
  - Confusional state [Unknown]
  - Asthenia [Unknown]
  - Flatulence [Unknown]
  - Peripheral swelling [Unknown]
  - Wrong technique in product usage process [Not Recovered/Not Resolved]
